FAERS Safety Report 7086738-9 (Version None)
Quarter: 2010Q4

REPORT INFORMATION
  Report Type: 
  Country: None (occurrence: None)
  Receive Date: 20101105
  Receipt Date: 20101025
  Transmission Date: 20110411
  Serious: Yes (Hospitalization)
  Sender: FDA-Public Use
  Company Number: US-ELI_LILLY_AND_COMPANY-US201010006257

PATIENT
  Age: 15 Year
  Sex: Female

DRUGS (8)
  1. HUMATROPE [Suspect]
     Indication: BLOOD GROWTH HORMONE
     Dosage: UNK, UNKNOWN
     Route: 065
  2. RANITIDINE [Concomitant]
     Dosage: UNK, UNKNOWN
     Route: 065
  3. DEXAMETHASONE [Concomitant]
     Dosage: UNK, UNKNOWN
     Route: 065
  4. ASCORBIC ACID [Concomitant]
     Dosage: UNK, UNKNOWN
     Route: 065
  5. ONDANSETRON [Concomitant]
     Dosage: UNK, UNKNOWN
     Route: 065
  6. MORPHINE [Concomitant]
     Dosage: UNK, UNKNOWN
     Route: 065
  7. LORATADINE [Concomitant]
     Dosage: UNK, UNKNOWN
     Route: 065
  8. TYLENOL W/ CODEINE [Concomitant]
     Dosage: UNK, UNKNOWN
     Route: 065

REACTIONS (3)
  - ASTROCYTOMA [None]
  - INCORRECT DOSE ADMINISTERED [None]
  - WRONG TECHNIQUE IN DRUG USAGE PROCESS [None]
